FAERS Safety Report 16870820 (Version 1)
Quarter: 2019Q3

REPORT INFORMATION
  Report Type: Report from Study
  Country: US (occurrence: US)
  Receive Date: 20190930
  Receipt Date: 20190930
  Transmission Date: 20191005
  Serious: No
  Sender: FDA-Public Use
  Company Number: US-CLOVIS ONCOLOGY-CLO-2019-001810

PATIENT
  Age: 60 Year
  Sex: Female

DRUGS (2)
  1. RUBRACA [Suspect]
     Active Substance: RUCAPARIB CAMSYLATE
     Indication: PRODUCT USED FOR UNKNOWN INDICATION
     Dosage: 300 MG, BID
     Route: 048
     Dates: start: 201808, end: 201908
  2. RUBRACA [Suspect]
     Active Substance: RUCAPARIB CAMSYLATE
     Dosage: 1200 MG, QD
     Route: 048
     Dates: start: 20180824, end: 20190911

REACTIONS (4)
  - Dyspnoea [Unknown]
  - Fatigue [Unknown]
  - Dizziness [Unknown]
  - Recurrent cancer [Unknown]

NARRATIVE: CASE EVENT DATE: 201908
